FAERS Safety Report 8455433 (Version 3)
Quarter: 2013Q1

REPORT INFORMATION
  Report Type: Spontaneous
  Country: DK (occurrence: JP)
  Receive Date: 20120313
  Receipt Date: 20130215
  Transmission Date: 20140127
  Serious: Yes (Other)
  Sender: FDA-Public Use
  Company Number: JP-FRI-1000028582

PATIENT
  Age: 33 Year
  Sex: Male
  Weight: 65 kg

DRUGS (8)
  1. LEXAPRO [Suspect]
     Indication: DEPRESSION
     Dosage: 20 MG
     Route: 048
     Dates: start: 20111004, end: 20120130
  2. TAPIZOL [Suspect]
     Dosage: 10 MG
     Route: 048
     Dates: start: 20111115, end: 20111216
  3. ABILIFY [Suspect]
     Dosage: 3 MG
     Route: 048
     Dates: start: 20120110, end: 20120123
  4. DOGMATYL [Suspect]
     Dosage: 100 MG
     Route: 048
     Dates: start: 20111101
  5. MEILAX [Concomitant]
     Dosage: 2 MG
     Route: 048
     Dates: start: 20111004
  6. FLUNITRAZEPAM [Concomitant]
     Dosage: 1 MG
     Route: 048
     Dates: start: 20111004, end: 20120213
  7. RIZE [Concomitant]
     Route: 048
     Dates: start: 20111101, end: 20120110
  8. PODONIN-S [Concomitant]
     Route: 048
     Dates: start: 20111101, end: 20120110

REACTIONS (6)
  - Hypertriglyceridaemia [Recovering/Resolving]
  - Liver disorder [Recovering/Resolving]
  - Aspartate aminotransferase increased [None]
  - Alanine aminotransferase increased [None]
  - Blood alkaline phosphatase increased [None]
  - Blood cholesterol increased [None]
